FAERS Safety Report 8269116-6 (Version None)
Quarter: 2012Q2

REPORT INFORMATION
  Report Type: 
  Country: None (occurrence: None)
  Receive Date: 20120409
  Receipt Date: 20120329
  Transmission Date: 20120825
  Serious: Yes (Death, Life-Threatening)
  Sender: FDA-Public Use
  Company Number: ES-TEVA-299149ISR

PATIENT
  Sex: Female
  Weight: 85.6 kg

DRUGS (9)
  1. LENALIDOMIDE [Suspect]
     Route: 048
     Dates: start: 20110818, end: 20110825
  2. LENALIDOMIDE [Suspect]
     Indication: MULTIPLE MYELOMA
     Route: 048
     Dates: start: 20110714
  3. DEXAMETHASONE [Suspect]
     Indication: MULTIPLE MYELOMA
     Dates: start: 20100714
  4. LEVOFLOXACIN [Concomitant]
     Indication: RESPIRATORY TRACT INFECTION
     Route: 048
  5. METFORMIN HCL [Concomitant]
     Indication: DIABETES MELLITUS
     Dosage: 7650 MILLIGRAM;
     Route: 048
     Dates: start: 20050101
  6. DEXAMETHASONE [Suspect]
     Dates: start: 20110818, end: 20110825
  7. CANDESARTAN CILEXETIL [Concomitant]
     Indication: HYPERTENSION
     Dosage: 9 MILLIGRAM;
     Route: 048
     Dates: start: 20080101
  8. ASPIRIN [Concomitant]
     Indication: THROMBOSIS PROPHYLAXIS
     Route: 048
  9. REPAGLINIDE [Concomitant]
     Indication: DIABETES MELLITUS
     Dosage: 18 MILLIGRAM;
     Route: 048
     Dates: start: 20000101

REACTIONS (4)
  - RESPIRATORY FAILURE [None]
  - LUNG SQUAMOUS CELL CARCINOMA STAGE UNSPECIFIED [None]
  - BRONCHOPNEUMONIA [None]
  - SUDDEN DEATH [None]
